FAERS Safety Report 23945436 (Version 1)
Quarter: 2024Q2

REPORT INFORMATION
  Report Type: Spontaneous
  Country: BG (occurrence: BG)
  Receive Date: 20240606
  Receipt Date: 20240606
  Transmission Date: 20240716
  Serious: Yes (Hospitalization, Other)
  Sender: FDA-Public Use
  Company Number: BG-BAYER-2024A079766

PATIENT
  Age: 63 Year
  Sex: Male

DRUGS (1)
  1. RIVAROXABAN [Suspect]
     Active Substance: RIVAROXABAN
     Indication: Product used for unknown indication
     Dosage: UNK
     Route: 048
     Dates: start: 2020

REACTIONS (19)
  - Right ventricular failure [Recovered/Resolved]
  - Glomerulonephritis membranous [Unknown]
  - Nephrotic syndrome [Unknown]
  - Nasal neoplasm [Unknown]
  - COVID-19 pneumonia [Unknown]
  - Cardiac failure [Recovered/Resolved]
  - Generalised oedema [Unknown]
  - Cyanosis [Unknown]
  - Tachypnoea [Unknown]
  - Hypotension [Unknown]
  - Bundle branch block right [Unknown]
  - Venous thrombosis [Unknown]
  - Pleural effusion [Unknown]
  - Ascites [Unknown]
  - Antiphospholipid syndrome [Unknown]
  - Cardiolipin antibody positive [Unknown]
  - Methylenetetrahydrofolate reductase gene mutation [Unknown]
  - Pulmonary endarterectomy [Unknown]
  - Generalised oedema [Unknown]
